FAERS Safety Report 4747804-3 (Version None)
Quarter: 2005Q3

REPORT INFORMATION
  Report Type: 
  Country: None (occurrence: None)
  Receive Date: 20050818
  Receipt Date: 20030622
  Transmission Date: 20060218
  Serious: Yes (Other)
  Sender: FDA-Public Use
  Company Number: PHEH2003US05344

PATIENT
  Sex: Female

DRUGS (8)
  1. MIRALAX [Concomitant]
  2. ZELNORM [Suspect]
     Indication: IRRITABLE BOWEL SYNDROME
     Dosage: 6 MG, BID
  3. ZELNORM [Suspect]
     Dosage: 6 MG, QD
  4. ZELNORM [Suspect]
     Dosage: 6 MG, PRN
  5. CENESTIN [Concomitant]
     Indication: HORMONE REPLACEMENT THERAPY
  6. MEDROL [Concomitant]
  7. LEVALL [Concomitant]
  8. TRI PAK [Concomitant]
     Dates: start: 20050207

REACTIONS (21)
  - ABDOMINAL PAIN [None]
  - ABDOMINAL TENDERNESS [None]
  - BACK PAIN [None]
  - BLOOD PRESSURE INCREASED [None]
  - CAFFEINE CONSUMPTION [None]
  - CHEST PAIN [None]
  - CHOLECYSTECTOMY [None]
  - CONSTIPATION [None]
  - DRUG INEFFECTIVE [None]
  - DYSPNOEA [None]
  - ERUCTATION [None]
  - FATIGUE [None]
  - GASTROOESOPHAGEAL REFLUX DISEASE [None]
  - HOT FLUSH [None]
  - MENOPAUSAL SYMPTOMS [None]
  - MOUTH ULCERATION [None]
  - MUSCLE STRAIN [None]
  - NASAL CONGESTION [None]
  - NAUSEA [None]
  - PAIN IN EXTREMITY [None]
  - SEDATION [None]
